FAERS Safety Report 8051861-9 (Version None)
Quarter: 2012Q1

REPORT INFORMATION
  Report Type: 
  Country: None (occurrence: None)
  Receive Date: 20120118
  Receipt Date: 20120111
  Transmission Date: 20120608
  Serious: Yes (Life-Threatening, Other)
  Sender: FDA-Public Use
  Company Number: GB-ELI_LILLY_AND_COMPANY-GB201201003394

PATIENT
  Age: 79 Year
  Sex: Female
  Weight: 65.5 kg

DRUGS (4)
  1. FUROSEMIDE [Concomitant]
     Dosage: 20 MG, QD
     Route: 048
  2. OLANZAPINE [Suspect]
     Indication: SCHIZOPHRENIA
     Dosage: 2.5 MG, QD
     Route: 048
     Dates: start: 20111213, end: 20111220
  3. EXEMESTANE [Concomitant]
     Dosage: 25 MG, QD
     Route: 048
  4. RAMIPRIL [Concomitant]
     Dosage: 5 MG, QD
     Route: 048

REACTIONS (2)
  - ACUTE MYOCARDIAL INFARCTION [None]
  - CONFUSIONAL STATE [None]
